FAERS Safety Report 15946774 (Version 2)
Quarter: 2019Q1

REPORT INFORMATION
  Report Type: Spontaneous
  Country: BR (occurrence: BR)
  Receive Date: 20190212
  Receipt Date: 20190330
  Transmission Date: 20190417
  Serious: Yes (Hospitalization)
  Sender: FDA-Public Use
  Company Number: BR-PANACEA BIOTEC LTD-2019-BR-000003

PATIENT
  Age: 28 Year
  Sex: Male

DRUGS (3)
  1. PREDNISONE. [Concomitant]
     Active Substance: PREDNISONE
     Indication: PROPHYLAXIS AGAINST TRANSPLANT REJECTION
     Dosage: 60 MG/DAY
     Route: 065
  2. MYCOPHENOLATE SODIUM [Suspect]
     Active Substance: MYCOPHENOLATE SODIUM
     Indication: PROPHYLAXIS AGAINST TRANSPLANT REJECTION
     Dosage: 1440 MG/DAY
     Route: 065
  3. TACROLIMUS. [Suspect]
     Active Substance: TACROLIMUS
     Indication: PROPHYLAXIS AGAINST TRANSPLANT REJECTION
     Dosage: 4 MG/DAY
     Route: 065

REACTIONS (5)
  - Psychotic disorder [Recovered/Resolved]
  - Leukopenia [Unknown]
  - Focal segmental glomerulosclerosis [Recovered/Resolved]
  - Neutropenia [Unknown]
  - Lymphopenia [Unknown]
